FAERS Safety Report 12476211 (Version 2)
Quarter: 2016Q3

REPORT INFORMATION
  Report Type: Spontaneous
  Country: US (occurrence: US)
  Receive Date: 20160617
  Receipt Date: 20160725
  Transmission Date: 20161109
  Serious: Yes (Other)
  Sender: FDA-Public Use
  Company Number: US-PFIZER INC-2016289497

PATIENT
  Age: 33 Year
  Sex: Female
  Weight: 90.72 kg

DRUGS (4)
  1. HUMALOG [Concomitant]
     Active Substance: INSULIN LISPRO
     Indication: TYPE 1 DIABETES MELLITUS
     Dosage: UNK (2 UNITS PER 3 GRAM CARB)
  2. LANTUS [Concomitant]
     Active Substance: INSULIN GLARGINE
     Indication: TYPE 1 DIABETES MELLITUS
     Dosage: 44 IU, 1X/DAY
  3. LISINOPRIL. [Concomitant]
     Active Substance: LISINOPRIL
     Indication: HYPERTENSION
     Dosage: 30 MG, 1X/DAY
  4. CHANTIX [Suspect]
     Active Substance: VARENICLINE TARTRATE
     Indication: SMOKING CESSATION THERAPY
     Dosage: 1 MG, 2X/DAY
     Route: 048
     Dates: start: 201605, end: 20160531

REACTIONS (5)
  - Abnormal dreams [Unknown]
  - Dry mouth [Unknown]
  - Nausea [Unknown]
  - Dehydration [Unknown]
  - Blood glucose increased [Recovered/Resolved]

NARRATIVE: CASE EVENT DATE: 201605
